FAERS Safety Report 21812599 (Version 1)
Quarter: 2022Q4

REPORT INFORMATION
  Report Type: Spontaneous
  Country: US (occurrence: None)
  Receive Date: 20221230
  Receipt Date: 20221230
  Transmission Date: 20230113
  Serious: No
  Sender: FDA-Public Use
  Company Number: None

PATIENT
  Sex: Female
  Weight: 47.17 kg

DRUGS (19)
  1. CAPECITABINE [Suspect]
     Active Substance: CAPECITABINE
     Indication: Colon cancer
     Dosage: OTHER QUANTITY : 1500MG - 1000MG;?OTHER FREQUENCY : AM/PM;?
     Route: 048
     Dates: start: 20220914
  2. ALBUTEROL [Concomitant]
     Active Substance: ALBUTEROL
  3. ANASPAZ [Concomitant]
     Active Substance: HYOSCYAMINE SULFATE
  4. ASPIRIN [Concomitant]
     Active Substance: ASPIRIN
  5. ATORVASTATIN [Concomitant]
     Active Substance: ATORVASTATIN
  6. BUPROPION [Concomitant]
     Active Substance: BUPROPION
  7. BUTALBITAL [Concomitant]
     Active Substance: BUTALBITAL
  8. ACETAMINOPHEN [Concomitant]
     Active Substance: ACETAMINOPHEN
  9. CAFFEINE [Concomitant]
     Active Substance: CAFFEINE
  10. CLOPIDOGREL [Concomitant]
     Active Substance: CLOPIDOGREL BISULFATE
  11. LORAZEPAM [Concomitant]
     Active Substance: LORAZEPAM
  12. LISINOPRIL [Concomitant]
     Active Substance: LISINOPRIL
  13. LYRICA [Concomitant]
     Active Substance: PREGABALIN
  14. PLAQUENIL [Concomitant]
     Active Substance: HYDROXYCHLOROQUINE SULFATE
  15. PROMETHAZINE [Concomitant]
     Active Substance: PROMETHAZINE HYDROCHLORIDE
  16. SERTRALINE [Concomitant]
     Active Substance: SERTRALINE HYDROCHLORIDE
  17. TRELEGY ELLIPTA [Concomitant]
     Active Substance: FLUTICASONE FUROATE\UMECLIDINIUM BROMIDE\VILANTEROL TRIFENATATE
  18. ELLIPTA [Concomitant]
  19. VITAMIN D3 [Concomitant]
     Active Substance: CHOLECALCIFEROL

REACTIONS (1)
  - Hospitalisation [None]
